FAERS Safety Report 22078796 (Version 1)
Quarter: 2023Q1

REPORT INFORMATION
  Report Type: Report from Study
  Country: US (occurrence: US)
  Receive Date: 20230309
  Receipt Date: 20230309
  Transmission Date: 20230418
  Serious: Yes (Other)
  Sender: FDA-Public Use
  Company Number: US-ABBVIE-4331676

PATIENT
  Age: 54 Year

DRUGS (1)
  1. SKYRIZI [Suspect]
     Active Substance: RISANKIZUMAB-RZAA
     Indication: Psoriasis
     Route: 058
     Dates: start: 20220118

REACTIONS (7)
  - Limb operation [Unknown]
  - Joint injury [Unknown]
  - Asthenia [Unknown]
  - Fibula fracture [Unknown]
  - Pain [Unknown]
  - Tibia fracture [Unknown]
  - Accident at work [Unknown]

NARRATIVE: CASE EVENT DATE: 20230303
